FAERS Safety Report 22805925 (Version 2)
Quarter: 2023Q4

REPORT INFORMATION
  Report Type: Spontaneous
  Country: US (occurrence: US)
  Receive Date: 20230809
  Receipt Date: 20231002
  Transmission Date: 20240110
  Serious: No
  Sender: FDA-Public Use
  Company Number: US-PFIZER INC-202300270951

PATIENT
  Age: 66 Year
  Sex: Female
  Weight: 65.76 kg

DRUGS (9)
  1. PAXLOVID [Suspect]
     Active Substance: NIRMATRELVIR\RITONAVIR
     Indication: COVID-19 treatment
     Dosage: [NIRMATRELVIR 300 MG]/[RITONAVIR 100 MG]; 2X/DAY
     Dates: start: 20230729, end: 20230802
  2. METHOTREXATE [Concomitant]
     Active Substance: METHOTREXATE
     Dosage: UNK, WEEKLY
     Dates: start: 2006, end: 20230722
  3. METHOTREXATE [Concomitant]
     Active Substance: METHOTREXATE
     Dosage: UNK, WEEKLY
     Dates: start: 20230819
  4. ENBREL [Concomitant]
     Active Substance: ETANERCEPT
     Dosage: UNK UNK, WEEKLY
     Dates: start: 201701, end: 20230723
  5. ENBREL [Concomitant]
     Active Substance: ETANERCEPT
     Dosage: UNK UNK, WEEKLY
     Dates: start: 20230821
  6. IBUPROFEN [Concomitant]
     Active Substance: IBUPROFEN
     Dosage: AT LEAST ONE DOSE
  7. MUCUS RELIEF [Concomitant]
     Active Substance: GUAIFENESIN
     Indication: Productive cough
     Dosage: 600 MG (12 HOURS )
  8. MUCUS RELIEF [Concomitant]
     Active Substance: GUAIFENESIN
     Dosage: 400 MG (4 HOURS )
  9. MUCUS RELIEF [Concomitant]
     Active Substance: GUAIFENESIN
     Dosage: TAPERED OFF

REACTIONS (2)
  - COVID-19 [Recovered/Resolved]
  - Disease recurrence [Recovered/Resolved]

NARRATIVE: CASE EVENT DATE: 20230807
